FAERS Safety Report 20173506 (Version 2)
Quarter: 2022Q1

REPORT INFORMATION
  Report Type: Other
  Country: US (occurrence: US)
  Receive Date: 20211212
  Receipt Date: 20220128
  Transmission Date: 20220423
  Serious: Yes (Other)
  Sender: FDA-Public Use
  Company Number: US-NEUROCRINE BIOSCIENCES INC.-2021NBI07060

PATIENT

DRUGS (21)
  1. INGREZZA [Suspect]
     Active Substance: VALBENAZINE
     Indication: Tardive dyskinesia
     Dosage: 40 MILLIGRAM, QD
     Route: 048
     Dates: start: 20211110, end: 20211202
  2. XANAX [Concomitant]
     Active Substance: ALPRAZOLAM
     Indication: Sleep disorder
     Dosage: 0.25 MILLIGRAM, PRN
     Route: 048
     Dates: start: 20210927
  3. BUSPAR [Concomitant]
     Active Substance: BUSPIRONE HYDROCHLORIDE
     Indication: Anxiety
     Dosage: 15 MILLIGRAM, BID
     Route: 048
     Dates: start: 20210927
  4. CATAPRES [Concomitant]
     Active Substance: CLONIDINE HYDROCHLORIDE
     Dosage: 0.1 MILLIGRAM, BID
     Route: 048
     Dates: start: 20210927, end: 20220105
  5. DOCONEXENT\MINERALS\VITAMINS [Concomitant]
     Active Substance: DOCONEXENT\MINERALS\VITAMINS
     Dosage: 1 DOSAGE FORM, QD (EVERY MORNING)
     Route: 048
  6. VIBRA-TABS [DOXYCYCLINE HYCLATE] [Concomitant]
     Dosage: 100 MILLIGRAM, BID
     Route: 048
     Dates: start: 20211115, end: 20211213
  7. ESTRACE [Concomitant]
     Active Substance: ESTRADIOL
     Dosage: INSERT 1 G INTO VAGINA TWICE WEEKLY AT BEDTIME
     Route: 067
     Dates: start: 20210716, end: 20211213
  8. PREMARIN [Concomitant]
     Active Substance: ESTROGENS, CONJUGATED
     Dosage: 1.25 MILLIGRAM, QD
     Route: 048
     Dates: start: 20210825
  9. AJOVY [Concomitant]
     Active Substance: FREMANEZUMAB-VFRM
     Dosage: INJECT 1.5 ML (225 MG), EVERY 30 DAYS
     Route: 058
     Dates: start: 20210916
  10. NEURONTIN [Concomitant]
     Active Substance: GABAPENTIN
     Indication: Cough
     Dosage: 300 MILLIGRAM, PRN (3 TIMES A DAY AS NEEDED)
     Route: 048
     Dates: start: 20211118
  11. LAMICTAL [Concomitant]
     Active Substance: LAMOTRIGINE
     Indication: Bipolar disorder
     Dosage: 200 MILLIGRAM, PRN (3 TABLETS BY MOUTH AT BEDTIME
     Route: 048
     Dates: start: 20210927, end: 20220105
  12. VYVANSE [Concomitant]
     Active Substance: LISDEXAMFETAMINE DIMESYLATE
     Dosage: 50 MILLIGRAM, QD (EVERY MORNING)
     Route: 048
     Dates: start: 20211016
  13. VYVANSE [Concomitant]
     Active Substance: LISDEXAMFETAMINE DIMESYLATE
     Dosage: 50 MILLIGRAM, QD (EVERY MORNING)
     Route: 048
     Dates: start: 20211116, end: 20220105
  14. PRINIVIL [Concomitant]
     Active Substance: LISINOPRIL
     Dosage: 40 MILLIGRAM, QD
     Route: 048
     Dates: start: 20210706, end: 20211213
  15. ZESTRIL [Concomitant]
     Active Substance: LISINOPRIL
     Dosage: 40 MILLIGRAM, QD
     Route: 048
     Dates: start: 20210706, end: 20211213
  16. ATIVAN [Concomitant]
     Active Substance: LORAZEPAM
     Indication: Sleep disorder
     Dosage: 0.5 MILLIGRAM AT BEDTIME AS NEEDED (SLEEP)
     Route: 048
     Dates: start: 20211130
  17. MELATONIN [Concomitant]
     Active Substance: MELATONIN
     Dosage: 300 MICROGRAM
     Route: 048
  18. MINIPRESS [Concomitant]
     Active Substance: PRAZOSIN HYDROCHLORIDE
     Dosage: 1 MILLIGRAM (NIGHTLY)
     Route: 048
  19. PHENERGAN [Concomitant]
     Active Substance: PROMETHAZINE HYDROCHLORIDE
     Indication: Nausea
     Dosage: 25 MILLIGRAM (EVERY 6 HOURS AS NEEDED)
     Route: 048
     Dates: start: 20211118
  20. SEROQUEL [Concomitant]
     Active Substance: QUETIAPINE FUMARATE
     Dosage: 200 MILLIGRAM (NIGHTLY)
     Route: 048
     Dates: start: 20211122, end: 20220105
  21. NURTEC ODT [Concomitant]
     Active Substance: RIMEGEPANT SULFATE
     Indication: Migraine
     Dosage: 75 MILLIGRAM (DISSOLVE ON TOP OF TONGUE AS NEEDED)
     Route: 048
     Dates: start: 20210316

REACTIONS (1)
  - Angioedema [Recovered/Resolved]

NARRATIVE: CASE EVENT DATE: 20211201
